FAERS Safety Report 5301851-1 (Version None)
Quarter: 2007Q2

REPORT INFORMATION
  Report Type: 
  Country: None (occurrence: None)
  Receive Date: 20070416
  Receipt Date: 20070416
  Transmission Date: 20071010
  Serious: Yes (Death)
  Sender: FDA-Public Use
  Company Number: None

PATIENT
  Age: 88 Year
  Sex: Female
  Weight: 54.4316 kg

DRUGS (5)
  1. DURAGESIC-100 [Suspect]
     Indication: DYSPHAGIA
     Dosage: ONE PATCH DAILY TRANSDERMAL
     Route: 062
     Dates: start: 20070208, end: 20070210
  2. DURAGESIC-100 [Suspect]
     Indication: PAIN
     Dosage: ONE PATCH DAILY TRANSDERMAL
     Route: 062
     Dates: start: 20070208, end: 20070210
  3. COREG [Concomitant]
  4. DIURETICS [Concomitant]
  5. COUMADIN [Concomitant]

REACTIONS (1)
  - SOMNOLENCE [None]
